FAERS Safety Report 9017814 (Version 2)
Quarter: 2013Q1

REPORT INFORMATION
  Report Type: Spontaneous
  Country: US (occurrence: US)
  Receive Date: 20130118
  Receipt Date: 20130122
  Transmission Date: 20140127
  Serious: Yes (Other)
  Sender: FDA-Public Use
  Company Number: US-BRISTOL-MYERS SQUIBB COMPANY-17278037

PATIENT
  Sex: Female

DRUGS (9)
  1. ABILIFY TABS 2 MG [Suspect]
     Indication: AFFECTIVE DISORDER
     Dosage: 1 DF = ONE-HALF OF AN ABILIFY 2MG TABS;DEC-2012=INCREASED TO 4MG
  2. ABILIFY TABS 2 MG [Suspect]
     Indication: PARANOIA
     Dosage: 1 DF = ONE-HALF OF AN ABILIFY 2MG TABS;DEC-2012=INCREASED TO 4MG
  3. WELLBUTRIN SR [Concomitant]
  4. VITAMINS [Concomitant]
  5. IRON [Concomitant]
  6. VITAMIN B12 [Concomitant]
  7. DOCUSATE [Concomitant]
  8. ZANTAC [Concomitant]
  9. CALTRATE [Concomitant]

REACTIONS (3)
  - Gastric disorder [Unknown]
  - Alopecia [Unknown]
  - Somnolence [Unknown]
